FAERS Safety Report 16851901 (Version 2)
Quarter: 2019Q4

REPORT INFORMATION
  Report Type: Spontaneous
  Country: DE (occurrence: DE)
  Receive Date: 20190925
  Receipt Date: 20191010
  Transmission Date: 20200122
  Serious: Yes (Hospitalization, Other)
  Sender: FDA-Public Use
  Company Number: DE-AMGEN-DEUSP2019155892

PATIENT
  Age: 63 Year
  Sex: Male
  Weight: 83.1 kg

DRUGS (8)
  1. ACETYLSALICYLIC ACID [Concomitant]
     Active Substance: ASPIRIN
  2. CAPECITABINE. [Concomitant]
     Active Substance: CAPECITABINE
  3. RAMIPRIL. [Concomitant]
     Active Substance: RAMIPRIL
     Indication: HYPERTENSION
     Dosage: 5 MILLIGRAM, BID
     Dates: start: 2011, end: 201805
  4. GEMCITABINE. [Concomitant]
     Active Substance: GEMCITABINE
  5. SIMVASTATIN. [Concomitant]
     Active Substance: SIMVASTATIN
     Indication: DYSLIPIDAEMIA
     Dosage: 40 MILLIGRAM, QD
     Dates: start: 2011, end: 201805
  6. CISPLATIN. [Concomitant]
     Active Substance: CISPLATIN
  7. XGEVA [Suspect]
     Active Substance: DENOSUMAB
     Indication: HYPERCALCAEMIA OF MALIGNANCY
     Dosage: 120 MILLIGRAM
     Route: 058
     Dates: start: 20170704
  8. SITAGLIPTIN [Concomitant]
     Active Substance: SITAGLIPTIN
     Indication: TYPE 2 DIABETES MELLITUS
     Dosage: 100 MILLIGRAM, QD
     Dates: start: 2014, end: 201805

REACTIONS (2)
  - Superinfection bacterial [Recovered/Resolved]
  - Influenza [Recovered/Resolved]

NARRATIVE: CASE EVENT DATE: 20180326
